FAERS Safety Report 16831708 (Version 1)
Quarter: 2019Q3

REPORT INFORMATION
  Report Type: Spontaneous
  Country: US (occurrence: US)
  Receive Date: 20190920
  Receipt Date: 20190920
  Transmission Date: 20191005
  Serious: Yes (Other)
  Sender: FDA-Public Use
  Company Number: US-GLENMARK PHARMACEUTICALS-2019GMK043177

PATIENT
  Age: 34 Year
  Sex: Female

DRUGS (2)
  1. LIDOCAINE. [Suspect]
     Active Substance: LIDOCAINE
     Indication: SCAR
     Dosage: UNK
     Route: 065
  2. HYALURONIC ACID [Suspect]
     Active Substance: HYALURONIC ACID
     Indication: SCAR
     Dosage: UNK
     Route: 065

REACTIONS (1)
  - Embolia cutis medicamentosa [Recovered/Resolved]
